FAERS Safety Report 12440572 (Version 1)
Quarter: 2016Q2

REPORT INFORMATION
  Report Type: Spontaneous
  Country: US (occurrence: US)
  Receive Date: 20160606
  Receipt Date: 20160606
  Transmission Date: 20160815
  Serious: No
  Sender: FDA-Public Use
  Company Number: US-AMGEN-USASP2016070792

PATIENT
  Age: 6 Month
  Sex: Female
  Weight: 7.16 kg

DRUGS (1)
  1. BLINCYTO [Suspect]
     Active Substance: BLINATUMOMAB
     Indication: ACUTE LYMPHOCYTIC LEUKAEMIA
     Dosage: 5.1 MUG, QD
     Route: 042
     Dates: start: 20160510

REACTIONS (2)
  - Remission not achieved [Unknown]
  - Off label use [Unknown]

NARRATIVE: CASE EVENT DATE: 201605
